FAERS Safety Report 9253382 (Version 3)
Quarter: 2013Q3

REPORT INFORMATION
  Report Type: Spontaneous
  Country: US (occurrence: US)
  Receive Date: 20130425
  Receipt Date: 20130930
  Transmission Date: 20140515
  Serious: Yes (Disabling, Other)
  Sender: FDA-Public Use
  Company Number: US-ASTRAZENECA-2013SE27255

PATIENT
  Age: 60 Year
  Sex: Female
  Weight: 65.8 kg

DRUGS (13)
  1. NEXIUM [Suspect]
     Indication: GASTROOESOPHAGEAL REFLUX DISEASE
     Route: 048
     Dates: start: 20061213, end: 2008
  2. PRILOSEC [Suspect]
     Indication: GASTROOESOPHAGEAL REFLUX DISEASE
     Route: 048
     Dates: start: 2010, end: 2012
  3. ASMANEX [Concomitant]
     Dates: start: 20061213
  4. PROPAFENONE HCL/PROPAFENONE [Concomitant]
     Dates: start: 20061213
  5. PROPAFENONE HCL/PROPAFENONE [Concomitant]
     Dates: start: 20070112
  6. DIGOXIN [Concomitant]
     Indication: CARDIAC DISORDER
     Dates: start: 20061213
  7. AVAPRO [Concomitant]
     Dates: start: 20070103
  8. VITAMIN D [Concomitant]
     Dates: start: 20070103
  9. PROTONIX [Concomitant]
     Dates: start: 20090406
  10. PEPTOBISMOL [Concomitant]
     Dosage: AS NEEDED
  11. PROMETHAZONE [Concomitant]
  12. XOPENEX [Concomitant]
     Indication: HYPERSENSITIVITY
  13. XOPENEX [Concomitant]
     Indication: ASTHMA

REACTIONS (7)
  - Convulsion [Unknown]
  - Neoplasm malignant [Unknown]
  - Cardiac disorder [Unknown]
  - Osteoporosis [Unknown]
  - Bone density decreased [Unknown]
  - Multiple fractures [Unknown]
  - Liver disorder [Unknown]
